FAERS Safety Report 13114288 (Version 1)
Quarter: 2017Q1

REPORT INFORMATION
  Report Type: Spontaneous
  Country: FR (occurrence: FR)
  Receive Date: 20170113
  Receipt Date: 20170113
  Transmission Date: 20170428
  Serious: Yes (Other)
  Sender: FDA-Public Use
  Company Number: FR-PFIZER INC-2017012715

PATIENT
  Age: 83 Year
  Sex: Female

DRUGS (13)
  1. PARACETAMOL [Concomitant]
     Active Substance: ACETAMINOPHEN
  2. SIMVASTATIN. [Concomitant]
     Active Substance: SIMVASTATIN
  3. VITAMIN D3 [Concomitant]
     Active Substance: CHOLECALCIFEROL
  4. LEVOTHYROXINE SODIUM. [Concomitant]
     Active Substance: LEVOTHYROXINE SODIUM
  5. GLUCOSE [Concomitant]
     Active Substance: DEXTROSE
  6. PANTOPRAZOLE [Concomitant]
     Active Substance: PANTOPRAZOLE SODIUM
  7. HYDROCHLOROTHIAZIDE. [Concomitant]
     Active Substance: HYDROCHLOROTHIAZIDE
  8. FOLIC ACID. [Concomitant]
     Active Substance: FOLIC ACID
  9. FRAGMINE [Suspect]
     Active Substance: DALTEPARIN SODIUM
     Indication: THROMBOSIS PROPHYLAXIS
     Dosage: 5000 IU, 1X/DAY
     Route: 058
     Dates: start: 20161010, end: 20161031
  10. ASPIRINE [Concomitant]
     Active Substance: ASPIRIN
  11. HYDROCORTISONE. [Concomitant]
     Active Substance: HYDROCORTISONE
  12. TELMISARTAN. [Concomitant]
     Active Substance: TELMISARTAN
  13. SERESTA [Concomitant]
     Active Substance: OXAZEPAM

REACTIONS (3)
  - Anaemia [Recovered/Resolved]
  - Adrenal haematoma [Recovered/Resolved]
  - Sepsis [Recovered/Resolved]

NARRATIVE: CASE EVENT DATE: 20161020
